FAERS Safety Report 12651526 (Version 1)
Quarter: 2016Q3

REPORT INFORMATION
  Report Type: Spontaneous
  Country: FR (occurrence: FR)
  Receive Date: 20160815
  Receipt Date: 20160815
  Transmission Date: 20161109
  Serious: Yes (Hospitalization)
  Sender: FDA-Public Use
  Company Number: FR-009507513-1608FRA007299

PATIENT
  Age: 89 Year
  Sex: Female

DRUGS (1)
  1. KEYTRUDA [Suspect]
     Active Substance: PEMBROLIZUMAB
     Indication: METASTATIC MALIGNANT MELANOMA
     Dosage: 0.0952 MG/KG (2 MG/ KG, EVERY 3 WEEKS)
     Route: 042
     Dates: start: 20151118, end: 20160504

REACTIONS (1)
  - Myositis ossificans [Not Recovered/Not Resolved]

NARRATIVE: CASE EVENT DATE: 201607
